FAERS Safety Report 4647262-3 (Version None)
Quarter: 2005Q2

REPORT INFORMATION
  Report Type: 
  Country: None (occurrence: None)
  Receive Date: 20050428
  Receipt Date: 20050311
  Transmission Date: 20051028
  Serious: Yes (Disabling, Other)
  Sender: FDA-Public Use
  Company Number: 200511962US

PATIENT
  Sex: Female
  Weight: 61.4 kg

DRUGS (1)
  1. KETEK [Suspect]
     Indication: ACUTE SINUSITIS
     Route: 048
     Dates: start: 20041229, end: 20050102

REACTIONS (2)
  - MYDRIASIS [None]
  - PUPILS UNEQUAL [None]
